FAERS Safety Report 4316573-3 (Version None)
Quarter: 2004Q1

REPORT INFORMATION
  Report Type: 
  Country: None (occurrence: None)
  Receive Date: 20040312
  Receipt Date: 20040312
  Transmission Date: 20041129
  Serious: Yes (Disabling)
  Sender: FDA-Public Use
  Company Number: None

PATIENT
  Sex: Female
  Weight: 57.6068 kg

DRUGS (1)
  1. ZICAM COLD REMEDY [Suspect]
     Indication: NASOPHARYNGITIS
     Dosage: TWO SPRAYS ONCE NASAL
     Route: 045
     Dates: start: 20030325, end: 20030325

REACTIONS (2)
  - ANOSMIA [None]
  - DYSGEUSIA [None]
